FAERS Safety Report 5964189-5 (Version None)
Quarter: 2008Q4

REPORT INFORMATION
  Report Type: 
  Country: None (occurrence: None)
  Receive Date: 20081119
  Receipt Date: 20081008
  Transmission Date: 20090506
  Serious: No
  Sender: FDA-Public Use
  Company Number: WAES 0810USA02293

PATIENT

DRUGS (1)
  1. JANUVIA [Suspect]
     Dosage: PO
     Route: 048

REACTIONS (5)
  - BLOODY DISCHARGE [None]
  - INFLUENZA LIKE ILLNESS [None]
  - MYALGIA [None]
  - NASAL OEDEMA [None]
  - RESTLESSNESS [None]
